FAERS Safety Report 15284119 (Version 1)
Quarter: 2018Q3

REPORT INFORMATION
  Report Type: Spontaneous
  Country: CN (occurrence: CN)
  Receive Date: 20180816
  Receipt Date: 20180816
  Transmission Date: 20181010
  Serious: Yes (Other)
  Sender: FDA-Public Use
  Company Number: CN-ROCHE-2170062

PATIENT
  Age: 53 Year
  Sex: Male

DRUGS (1)
  1. PEG?INTERFERON ALFA 2A [Suspect]
     Active Substance: PEGINTERFERON ALFA-2A
     Indication: HEPATOCELLULAR CARCINOMA
     Route: 065

REACTIONS (10)
  - Headache [Recovered/Resolved]
  - Arthralgia [Recovered/Resolved]
  - Alopecia [Recovering/Resolving]
  - Discomfort [Recovered/Resolved]
  - Diabetes mellitus [Unknown]
  - Leukopenia [Unknown]
  - Thrombocytopenia [Unknown]
  - Neutropenia [Unknown]
  - Pyrexia [Recovered/Resolved]
  - Myalgia [Recovered/Resolved]
